FAERS Safety Report 14776552 (Version 7)
Quarter: 2018Q2

REPORT INFORMATION
  Report Type: Spontaneous
  Country: DE (occurrence: DE)
  Receive Date: 20180418
  Receipt Date: 20180626
  Transmission Date: 20180711
  Serious: Yes (Other)
  Sender: FDA-Public Use
  Company Number: PHHY2018DE065591

PATIENT
  Age: 32 Year
  Sex: Male

DRUGS (6)
  1. TACROLIMUS. [Suspect]
     Active Substance: TACROLIMUS
     Indication: RENAL TRANSPLANT
     Dosage: 15 MG, UNK
     Route: 048
  2. TACROLIMUS. [Suspect]
     Active Substance: TACROLIMUS
     Dosage: 13 MG, ONCE DAILY (7MG MORNING AND 6 MG EVENING)
     Route: 048
  3. ENVARSUS XR [Suspect]
     Active Substance: TACROLIMUS
     Dosage: 15 MG, QD 1-0-0 (FOR 2 MONTHS)
     Route: 048
  4. SANDIMMUN [Suspect]
     Active Substance: CYCLOSPORINE
     Indication: RENAL TRANSPLANT
     Dosage: 2 MONTHS
     Route: 065
  5. PROGRAF [Suspect]
     Active Substance: TACROLIMUS\TACROLIMUS ANHYDROUS
     Indication: RENAL TRANSPLANT
     Dosage: UNK, 10 DAYS
     Route: 065
  6. ENVARSUS XR [Suspect]
     Active Substance: TACROLIMUS
     Indication: RENAL TRANSPLANT
     Dosage: 13 MG, (7MG MORNING AND 6 MG EVENING)
     Route: 048

REACTIONS (7)
  - Intentional product misuse [Unknown]
  - Abdominal pain upper [Recovering/Resolving]
  - Hypermetabolism [Unknown]
  - Immunosuppressant drug level increased [Unknown]
  - Large intestinal ulcer [Recovering/Resolving]
  - Immunosuppressant drug level decreased [Recovering/Resolving]
  - Abdominal pain [Recovering/Resolving]
